FAERS Safety Report 5141590-3 (Version None)
Quarter: 2006Q4

REPORT INFORMATION
  Report Type: 
  Country: None (occurrence: None)
  Receive Date: 20061026
  Receipt Date: 20060925
  Transmission Date: 20070319
  Serious: Yes (Death, Other)
  Sender: FDA-Public Use
  Company Number: 2006123207

PATIENT
  Sex: Female

DRUGS (2)
  1. BEXTRA [Suspect]
     Dosage: ORAL
     Route: 048
     Dates: start: 20030619, end: 20031119
  2. VIOXX [Suspect]
     Dosage: ORAL
     Route: 048
     Dates: start: 20030724, end: 20031119

REACTIONS (1)
  - MYOCARDIAL INFARCTION [None]
